FAERS Safety Report 7483317-6 (Version None)
Quarter: 2011Q2

REPORT INFORMATION
  Report Type: 
  Country: None (occurrence: None)
  Receive Date: 20110517
  Receipt Date: 20110503
  Transmission Date: 20111010
  Serious: Yes (Other)
  Sender: FDA-Public Use
  Company Number: HR-JNJFOC-20110503482

PATIENT
  Age: 29 Year
  Sex: Male

DRUGS (8)
  1. FLUPHENAZINE [Suspect]
     Indication: SCHIZOPHRENIA
     Route: 065
  2. CLOZAPINE [Suspect]
     Dosage: IN EVENING
     Route: 065
  3. BIPERIDEN HYDROCHLORIDE TAB [Suspect]
     Route: 065
  4. BIPERIDEN HYDROCHLORIDE TAB [Suspect]
     Indication: SCHIZOPHRENIA
     Route: 065
  5. RISPERDAL CONSTA [Suspect]
     Indication: SCHIZOPHRENIA
     Route: 030
     Dates: start: 20080101
  6. CLONAZEPAM [Suspect]
     Indication: SCHIZOPHRENIA
     Route: 065
  7. FLUPHENAZINE [Suspect]
     Dosage: DECREASED TO 5MG MORNING DOSE
     Route: 065
  8. CLOZAPINE [Suspect]
     Indication: SCHIZOPHRENIA
     Route: 065

REACTIONS (6)
  - COGNITIVE DISORDER [None]
  - ELECTROENCEPHALOGRAM ABNORMAL [None]
  - ERECTILE DYSFUNCTION [None]
  - INSOMNIA [None]
  - SOCIAL AVOIDANT BEHAVIOUR [None]
  - EMOTIONAL DISORDER [None]
